FAERS Safety Report 10103443 (Version 2)
Quarter: 2014Q2

REPORT INFORMATION
  Report Type: Spontaneous
  Country: IT (occurrence: IT)
  Receive Date: 20140424
  Receipt Date: 20140424
  Transmission Date: 20141212
  Serious: Yes (Death, Other)
  Sender: FDA-Public Use
  Company Number: IT-MPIJNJ-2014MPI001141

PATIENT
  Sex: 0

DRUGS (2)
  1. VELCADE [Suspect]
     Indication: CARDIAC AMYLOIDOSIS
     Dosage: 1.3 MG/SQM, ON 1ST, 8TH, 15TH, AND 22ND
     Route: 042
  2. DEXAMETHASONE [Suspect]
     Dosage: 20 MG, QD, ON THE 1ST, 8TH, 15TH, AND 22ND

REACTIONS (6)
  - Respiratory failure [Fatal]
  - Interstitial lung disease [Fatal]
  - Hypotension [Unknown]
  - Lactic acidosis [Unknown]
  - Off label use [Unknown]
  - Therapeutic response changed [Unknown]
